FAERS Safety Report 20482280 (Version 1)
Quarter: 2022Q1

REPORT INFORMATION
  Report Type: Spontaneous
  Country: TR (occurrence: TR)
  Receive Date: 20220216
  Receipt Date: 20220216
  Transmission Date: 20220424
  Serious: Yes (Life-Threatening, Hospitalization, Other)
  Sender: FDA-Public Use
  Company Number: TR-SUN PHARMACEUTICAL INDUSTRIES LTD-2022R1-327184

PATIENT
  Sex: Male
  Weight: 2.92 kg

DRUGS (1)
  1. SOTALOL [Suspect]
     Active Substance: SOTALOL
     Indication: Tachycardia foetal
     Dosage: 160 MILLIGRAM, BID
     Route: 064

REACTIONS (5)
  - Drug ineffective [Unknown]
  - Respiratory failure [Unknown]
  - Foetal exposure during pregnancy [Unknown]
  - Premature baby [Unknown]
  - Hepatomegaly [Unknown]
